FAERS Safety Report 10922483 (Version 1)
Quarter: 2015Q1

REPORT INFORMATION
  Report Type: Spontaneous
  Country: SE (occurrence: SE)
  Receive Date: 20150317
  Receipt Date: 20150317
  Transmission Date: 20150721
  Serious: Yes (Other)
  Sender: FDA-Public Use
  Company Number: CHPA2015SE002848

PATIENT
  Sex: Male

DRUGS (1)
  1. THERIMIN UNKNOWN [Suspect]
     Active Substance: ACETAMINOPHEN
     Indication: PRODUCT USED FOR UNKNOWN INDICATION
     Dosage: UNK
     Route: 065

REACTIONS (4)
  - Gastric ulcer [Unknown]
  - Panic disorder [Unknown]
  - Abdominal pain [Unknown]
  - Dyspnoea [Unknown]
